FAERS Safety Report 10018386 (Version 2)
Quarter: 2014Q1

REPORT INFORMATION
  Report Type: Spontaneous
  Country: IT (occurrence: IT)
  Receive Date: 20140318
  Receipt Date: 20140330
  Transmission Date: 20141002
  Serious: Yes (Other)
  Sender: FDA-Public Use
  Company Number: IT-TEVA-468799ISR

PATIENT
  Age: 18 Year
  Sex: Male

DRUGS (3)
  1. CEFAZOLINA TEVA [Suspect]
     Indication: PREMEDICATION
     Dosage: 2 GRAM DAILY; POWDER AND SOLVENT FOR SOLUTION FOR INJECTION
     Route: 042
     Dates: start: 20140303, end: 20140303
  2. MARCAINA HYPERBARIC [Concomitant]
     Dosage: SUBARACHNOID
  3. MORPHINE [Concomitant]
     Dosage: SUBARACHNOID

REACTIONS (7)
  - Blood pressure decreased [Recovering/Resolving]
  - Cough [Recovering/Resolving]
  - Dysgeusia [Recovering/Resolving]
  - Flushing [Recovering/Resolving]
  - Sneezing [Recovering/Resolving]
  - Strawberry tongue [Recovering/Resolving]
  - Cold sweat [Recovering/Resolving]
